APPROVED DRUG PRODUCT: IONSYS
Active Ingredient: FENTANYL HYDROCHLORIDE
Strength: EQ 40MCG BASE/ACTIVATION
Dosage Form/Route: SYSTEM;IONTOPHORESIS, TRANSDERMAL
Application: N021338 | Product #001
Applicant: THE MEDICINES CO
Approved: May 22, 2006 | RLD: Yes | RS: No | Type: DISCN

PATENTS:
Patent 8428709 | Expires: Jun 11, 2032
Patent 8428708 | Expires: May 21, 2032
Patent 8781571 | Expires: Mar 31, 2032
Patent 9364656 | Expires: Sep 30, 2031
Patent 9731121 | Expires: Oct 17, 2031
Patent 8301238 | Expires: Sep 30, 2031
Patent 9095706 | Expires: Feb 3, 2033